FAERS Safety Report 16290863 (Version 3)
Quarter: 2019Q4

REPORT INFORMATION
  Report Type: Spontaneous
  Country: AU (occurrence: AU)
  Receive Date: 20190509
  Receipt Date: 20191223
  Transmission Date: 20200122
  Serious: Yes (Death)
  Sender: FDA-Public Use
  Company Number: AU-ACTELION-A-CH2019-189913

PATIENT
  Sex: Male

DRUGS (8)
  1. CITALOPRAM [Concomitant]
     Active Substance: CITALOPRAM HYDROBROMIDE
  2. FRUSEMIDE [Concomitant]
     Active Substance: FUROSEMIDE
     Dosage: 60 MG, QD
  3. NEXIUM [Concomitant]
     Active Substance: ESOMEPRAZOLE MAGNESIUM
  4. KINSON [Concomitant]
     Active Substance: CARBIDOPA\LEVODOPA
  5. SILDENAFIL. [Concomitant]
     Active Substance: SILDENAFIL
     Indication: PULMONARY ARTERIAL HYPERTENSION
     Dosage: 50 MG, TID
     Route: 048
     Dates: start: 20110601, end: 20190426
  6. OPSUMIT [Suspect]
     Active Substance: MACITENTAN
     Indication: PULMONARY ARTERIAL HYPERTENSION
     Dosage: 10 MG, QD
     Route: 048
     Dates: start: 20140901, end: 20190426
  7. PERINDOPRIL [Concomitant]
     Active Substance: PERINDOPRIL
  8. ATORVASTATIN [Concomitant]
     Active Substance: ATORVASTATIN

REACTIONS (4)
  - Hypokinesia [Fatal]
  - Parkinson^s disease [Fatal]
  - Pneumonia aspiration [Fatal]
  - Upper gastrointestinal haemorrhage [Fatal]
